FAERS Safety Report 6712967-7 (Version None)
Quarter: 2010Q2

REPORT INFORMATION
  Report Type: 
  Country: None (occurrence: None)
  Receive Date: 20100506
  Receipt Date: 20100503
  Transmission Date: 20101027
  Serious: Yes (Death, Hospitalization)
  Sender: FDA-Public Use
  Company Number: BR-ASTRAZENECA-2010SE19915

PATIENT
  Age: 78 Year
  Sex: Female

DRUGS (1)
  1. SEROQUEL XRO [Suspect]
     Indication: BIPOLAR DISORDER
     Route: 048
     Dates: start: 20100201

REACTIONS (2)
  - DEATH [None]
  - GASTRIC NEOPLASM [None]
